FAERS Safety Report 15452712 (Version 1)
Quarter: 2018Q4

REPORT INFORMATION
  Report Type: Spontaneous
  Country: IT (occurrence: IT)
  Receive Date: 20181001
  Receipt Date: 20181001
  Transmission Date: 20190204
  Serious: Yes (Hospitalization, Other)
  Sender: FDA-Public Use
  Company Number: IT-SA-2018SA181957

PATIENT
  Age: 48 Year
  Sex: Male

DRUGS (2)
  1. ACETYLSALICYLIC ACID [Interacting]
     Active Substance: ASPIRIN
     Dosage: UNK
  2. CLOPIDOGREL BISULFATE. [Suspect]
     Active Substance: CLOPIDOGREL BISULFATE
     Indication: CORONARY ARTERY DISEASE
     Dosage: UNK

REACTIONS (5)
  - Product administration error [Unknown]
  - Headache [Unknown]
  - Hemiparesis [Unknown]
  - Labelled drug-drug interaction medication error [Unknown]
  - Haemorrhagic transformation stroke [Unknown]
